FAERS Safety Report 14590704 (Version 1)
Quarter: 2018Q1

REPORT INFORMATION
  Report Type: Spontaneous
  Country: US (occurrence: US)
  Receive Date: 20180301
  Receipt Date: 20180301
  Transmission Date: 20180509
  Serious: Yes (Other)
  Sender: FDA-Public Use
  Company Number: None

PATIENT
  Age: 37 Year
  Sex: Female

DRUGS (6)
  1. VENTOLIN HFA [Suspect]
     Active Substance: ALBUTEROL SULFATE
     Indication: OBSTRUCTIVE AIRWAYS DISORDER
     Dosage: QUANTITY:200 INHALATION(S); EVERY 4 HOURS; ORAL?
     Route: 048
     Dates: start: 20180224, end: 20180301
  2. MAGNESIUM [Concomitant]
     Active Substance: MAGNESIUM
  3. NEBULIZER [Concomitant]
     Active Substance: DEVICE
  4. OXYGEN CONCENTRATE [Concomitant]
  5. XOLAIR [Concomitant]
     Active Substance: OMALIZUMAB
  6. XOPENEX [Concomitant]
     Active Substance: LEVALBUTEROL HYDROCHLORIDE

REACTIONS (3)
  - Drug effect decreased [None]
  - Device malfunction [None]
  - Overdose [None]

NARRATIVE: CASE EVENT DATE: 20180224
